FAERS Safety Report 4987755-2 (Version None)
Quarter: 2006Q2

REPORT INFORMATION
  Report Type: 
  Country: None (occurrence: None)
  Receive Date: 20060426
  Receipt Date: 20060413
  Transmission Date: 20061013
  Serious: Yes (Other)
  Sender: FDA-Public Use
  Company Number: 2006US000790

PATIENT
  Age: 36 Year
  Sex: Male

DRUGS (1)
  1. ADENOSCAN [Suspect]
     Indication: SCAN MYOCARDIAL PERFUSION
     Dosage: 720 MG/KG, IV NOS
     Route: 042
     Dates: start: 20060310, end: 20060310

REACTIONS (2)
  - LOSS OF CONSCIOUSNESS [None]
  - SHOCK [None]
